FAERS Safety Report 5702982-4 (Version None)
Quarter: 2008Q2

REPORT INFORMATION
  Report Type: 
  Country: None (occurrence: None)
  Receive Date: 20080411
  Receipt Date: 20080407
  Transmission Date: 20081010
  Serious: Yes (Death)
  Sender: FDA-Public Use
  Company Number: FR-JNJFOC-20080401458

PATIENT
  Sex: Male

DRUGS (12)
  1. GALANTAMINE HYDROBROMIDE [Suspect]
     Indication: MEMORY IMPAIRMENT
     Route: 048
  2. TERCIAN [Suspect]
     Indication: PSYCHIATRIC DECOMPENSATION
     Route: 030
  3. ATHYMIL [Suspect]
     Indication: DEPRESSION
     Route: 048
  4. MEPRONIZINE [Suspect]
     Indication: INSOMNIA
     Route: 048
  5. OXYNORM [Suspect]
     Indication: PAIN
     Route: 048
  6. OXYCONTIN [Suspect]
     Indication: PAIN
     Route: 048
  7. ATACAND [Suspect]
     Indication: HYPERTENSION
  8. ATENOLOL [Suspect]
     Indication: HYPERTENSION
     Route: 048
  9. PRAXILENE [Suspect]
     Indication: COGNITIVE DISORDER
  10. PREVISCAN [Suspect]
     Indication: ATRIAL FIBRILLATION
     Route: 048
  11. FORLAX [Suspect]
     Indication: CONSTIPATION
     Route: 048
  12. INIPOMP [Suspect]
     Indication: PROPHYLAXIS
     Route: 048

REACTIONS (6)
  - CYANOSIS [None]
  - DEATH [None]
  - DYSPNOEA [None]
  - EYE ROLLING [None]
  - LOSS OF CONSCIOUSNESS [None]
  - URINARY INCONTINENCE [None]
